FAERS Safety Report 9795685 (Version 1)
Quarter: 2014Q1

REPORT INFORMATION
  Report Type: Spontaneous
  Country: FR (occurrence: FR)
  Receive Date: 20140103
  Receipt Date: 20140103
  Transmission Date: 20141002
  Serious: Yes (Hospitalization)
  Sender: FDA-Public Use
  Company Number: FR-SA-2013SA134637

PATIENT
  Age: 73 Year
  Sex: Female

DRUGS (11)
  1. KARDEGIC [Suspect]
     Indication: MYOCARDIAL INFARCTION
     Route: 048
     Dates: end: 20131011
  2. LASILIX [Suspect]
     Indication: CARDIAC FAILURE
     Route: 048
  3. PREVISCAN [Suspect]
     Indication: ANTIPHOSPHOLIPID SYNDROME
     Route: 048
     Dates: start: 20131007
  4. TAHOR [Suspect]
     Indication: HYPERCHOLESTEROLAEMIA
     Route: 048
  5. PERINDOPRIL ACTAVIS [Suspect]
     Indication: HYPERTENSION
     Route: 048
  6. GALVUS [Suspect]
     Indication: TYPE 2 DIABETES MELLITUS
     Route: 048
  7. AMLODIPINE [Suspect]
     Indication: TYPE 2 DIABETES MELLITUS
     Route: 048
  8. LEVOTHYROXINE [Concomitant]
  9. CETIRIZINE HYDROCHLORIDE [Concomitant]
  10. FUMAFER [Concomitant]
  11. ZOLPIDEM ARROW [Concomitant]

REACTIONS (2)
  - Gastrointestinal haemorrhage [Recovered/Resolved]
  - Haemorrhagic anaemia [Recovered/Resolved]
